FAERS Safety Report 4519893-2 (Version None)
Quarter: 2004Q4

REPORT INFORMATION
  Report Type: 
  Country: None (occurrence: None)
  Receive Date: 20041202
  Receipt Date: 20041202
  Transmission Date: 20050328
  Serious: Yes (Hospitalization, Disabling)
  Sender: FDA-Public Use
  Company Number: None

PATIENT
  Age: 52 Year
  Sex: Female
  Weight: 48 kg

DRUGS (3)
  1. PROMETHAZINE [Suspect]
     Indication: NAUSEA
     Dosage: 12.5MG   Q2 PRN  INTRAVENOUS
     Route: 042
     Dates: start: 20041103, end: 20041103
  2. PROMETHAZINE [Suspect]
     Indication: VOMITING
     Dosage: 12.5MG   Q2 PRN  INTRAVENOUS
     Route: 042
     Dates: start: 20041103, end: 20041103
  3. IV DYE [Concomitant]

REACTIONS (7)
  - ARM AMPUTATION [None]
  - HAND AMPUTATION [None]
  - INFUSION SITE PAIN [None]
  - MEDICATION ERROR [None]
  - PERIPHERAL CIRCULATORY FAILURE [None]
  - RADIAL PULSE ABNORMAL [None]
  - SKIN DISCOLOURATION [None]
